FAERS Safety Report 5529356-3 (Version None)
Quarter: 2007Q4

REPORT INFORMATION
  Report Type: 
  Country: None (occurrence: None)
  Receive Date: 20071129
  Receipt Date: 20071120
  Transmission Date: 20080405
  Serious: Yes (Hospitalization, Congenital Anomaly)
  Sender: FDA-Public Use
  Company Number: A0685751A

PATIENT
  Sex: Female
  Weight: 1.8 kg

DRUGS (4)
  1. PAXIL [Suspect]
     Indication: ANXIETY
     Dosage: 40MG UNKNOWN
     Dates: start: 19990101
  2. ANTI-EMETIC [Concomitant]
     Indication: NAUSEA
     Dates: start: 20030101
  3. PRENATAL VITAMINS [Concomitant]
  4. PHENERGAN HCL [Concomitant]

REACTIONS (25)
  - ATRIAL SEPTAL DEFECT [None]
  - ATRIAL TACHYCARDIA [None]
  - CARDIAC FAILURE CONGESTIVE [None]
  - CARDIAC MURMUR [None]
  - CARDIOMEGALY [None]
  - CEREBRAL PALSY [None]
  - DEVELOPMENTAL DELAY [None]
  - DRUG EXPOSURE DURING PREGNANCY [None]
  - DYSMORPHISM [None]
  - DYSPNOEA [None]
  - DYSPNOEA EXERTIONAL [None]
  - EATING DISORDER [None]
  - FAILURE TO THRIVE [None]
  - FATIGUE [None]
  - HYPERHIDROSIS [None]
  - HYPOTONIA [None]
  - LEFT VENTRICULAR HYPERTROPHY [None]
  - NEUROMYOPATHY [None]
  - PREMATURE BABY [None]
  - PSYCHOMOTOR SKILLS IMPAIRED [None]
  - RESPIRATORY DEPTH INCREASED [None]
  - RIGHT VENTRICULAR HYPERTROPHY [None]
  - SUPRAVENTRICULAR EXTRASYSTOLES [None]
  - SUPRAVENTRICULAR TACHYCARDIA [None]
  - WEIGHT GAIN POOR [None]
